FAERS Safety Report 14073941 (Version 1)
Quarter: 2017Q4

REPORT INFORMATION
  Report Type: Spontaneous
  Country: US (occurrence: US)
  Receive Date: 20171011
  Receipt Date: 20171011
  Transmission Date: 20180321
  Serious: Yes (Hospitalization, Other)
  Sender: FDA-Public Use
  Company Number: US-PFIZER INC-2017436433

PATIENT
  Age: 80 Year
  Sex: Female
  Weight: 66.68 kg

DRUGS (1)
  1. IBRANCE [Suspect]
     Active Substance: PALBOCICLIB
     Indication: BREAST CANCER
     Dosage: 75 MG, 1X/DAY
     Route: 048
     Dates: end: 20171001

REACTIONS (2)
  - Pleural effusion [Unknown]
  - Sepsis [Recovering/Resolving]
